FAERS Safety Report 19814886 (Version 2)
Quarter: 2021Q3

REPORT INFORMATION
  Report Type: Spontaneous
  Country: DE (occurrence: DE)
  Receive Date: 20210910
  Receipt Date: 20210915
  Transmission Date: 20211014
  Serious: Yes (Death, Other)
  Sender: FDA-Public Use
  Company Number: DE-MYLANLABS-2021M1061283

PATIENT
  Sex: Female

DRUGS (5)
  1. LETROZOLE. [Suspect]
     Active Substance: LETROZOLE
     Dosage: 2.5 MILLIGRAM, QD
     Route: 048
     Dates: start: 20200815
  2. LETROZOLE. [Suspect]
     Active Substance: LETROZOLE
     Indication: BREAST CANCER METASTATIC
     Dosage: 2.5 MILLIGRAM, QD
     Route: 048
     Dates: start: 20200925
  3. IBRANCE [Suspect]
     Active Substance: PALBOCICLIB
     Dosage: 100 MILLIGRAM (100 MG (21 DAYS INTAKE DAILY, 7 DAYS BREAK))
     Route: 048
     Dates: end: 20210209
  4. IBRANCE [Suspect]
     Active Substance: PALBOCICLIB
     Dosage: 100 MILLIGRAM, 100 MG (21 DAYS INTAKE DAILY, 7 DAYS BREAK)
     Route: 048
     Dates: start: 20201027, end: 20201201
  5. IBRANCE [Suspect]
     Active Substance: PALBOCICLIB
     Indication: BREAST CANCER METASTATIC
     Dosage: 125 MILLIGRAM, 125 MG (21 DAYS INTAKE DAILY, 7 DAYS BREAK )
     Route: 048
     Dates: start: 20200929, end: 20201101

REACTIONS (2)
  - Neutropenia [Recovered/Resolved]
  - Metastases to central nervous system [Fatal]

NARRATIVE: CASE EVENT DATE: 20201027
